FAERS Safety Report 22615663 (Version 1)
Quarter: 2023Q2

REPORT INFORMATION
  Report Type: Spontaneous
  Country: DE (occurrence: DE)
  Receive Date: 20230619
  Receipt Date: 20230619
  Transmission Date: 20230721
  Serious: Yes (Other)
  Sender: FDA-Public Use
  Company Number: DE-UCBSA-2023030506

PATIENT
  Sex: Male

DRUGS (3)
  1. BRIVIACT [Suspect]
     Active Substance: BRIVARACETAM
     Indication: Epilepsy
     Dosage: 75 MILLIGRAM, 2X/DAY (BID)
     Route: 065
  2. CENOBAMATE [Suspect]
     Active Substance: CENOBAMATE
     Indication: Epilepsy
     Dosage: 200 MILLIGRAM, ONCE DAILY (QD)
     Route: 065
  3. CENOBAMATE [Suspect]
     Active Substance: CENOBAMATE
     Dosage: 150 MILLIGRAM, ONCE DAILY (QD)
     Route: 065

REACTIONS (2)
  - Seizure [Unknown]
  - Abdominal pain [Not Recovered/Not Resolved]

NARRATIVE: CASE EVENT DATE: 20230401
